FAERS Safety Report 6677335-5 (Version None)
Quarter: 2010Q2

REPORT INFORMATION
  Report Type: 
  Country: None (occurrence: None)
  Receive Date: 20100412
  Receipt Date: 20100402
  Transmission Date: 20101027
  Serious: Yes (Life-Threatening)
  Sender: FDA-Public Use
  Company Number: GXKR2010GB03907

PATIENT
  Age: 67 Year
  Sex: Female

DRUGS (2)
  1. FLUOXETINE [Suspect]
     Indication: DEPRESSION
     Dosage: 60 MG, UNK
     Route: 065
  2. ONDANSETRON [Interacting]
     Indication: NAUSEA
     Dosage: 4 MG, BID
     Route: 065

REACTIONS (10)
  - BLOOD MAGNESIUM DECREASED [None]
  - DRUG INTERACTION [None]
  - ELECTROCARDIOGRAM T WAVE INVERSION [None]
  - EMOTIONAL DISTRESS [None]
  - IMPLANTABLE DEFIBRILLATOR INSERTION [None]
  - LONG QT SYNDROME [None]
  - STRESS CARDIOMYOPATHY [None]
  - SYNCOPE [None]
  - TORSADE DE POINTES [None]
  - VENTRICULAR TACHYCARDIA [None]
